FAERS Safety Report 6533469-7 (Version None)
Quarter: 2010Q1

REPORT INFORMATION
  Report Type: 
  Country: None (occurrence: None)
  Receive Date: 20100111
  Receipt Date: 20091009
  Transmission Date: 20100710
  Serious: No
  Sender: FDA-Public Use
  Company Number: A0811059A

PATIENT
  Age: 67 Year
  Sex: Female

DRUGS (6)
  1. REQUIP XL [Suspect]
     Indication: PARKINSON'S DISEASE
     Dosage: 10MG PER DAY
     Route: 048
     Dates: start: 20080901
  2. ROPINIROLE [Suspect]
     Indication: PARKINSON'S DISEASE
     Route: 048
     Dates: start: 20070101, end: 20080901
  3. HYZAAR [Concomitant]
  4. LEVOTHYROXINE SODIUM [Concomitant]
  5. EVISTA [Concomitant]
  6. CRESTOR [Concomitant]

REACTIONS (3)
  - NAUSEA [None]
  - SLEEP DISORDER [None]
  - SOMNOLENCE [None]
